FAERS Safety Report 17575115 (Version 3)
Quarter: 2020Q2

REPORT INFORMATION
  Report Type: Spontaneous
  Country: AU (occurrence: AU)
  Receive Date: 20200324
  Receipt Date: 20200611
  Transmission Date: 20200713
  Serious: Yes (Hospitalization, Other)
  Sender: FDA-Public Use
  Company Number: NVSC2020AU052103

PATIENT
  Sex: Male

DRUGS (30)
  1. CLOZARIL [Suspect]
     Active Substance: CLOZAPINE
     Dosage: UNK
     Route: 048
     Dates: start: 20200323
  2. OLANZAPINE. [Suspect]
     Active Substance: OLANZAPINE
     Dosage: 405 MG, QMO
     Route: 030
     Dates: start: 201911
  3. RISPERIDONE MYLAN [Suspect]
     Active Substance: RISPERIDONE
     Indication: PRODUCT USED FOR UNKNOWN INDICATION
     Dosage: UNK
     Route: 065
     Dates: start: 201911
  4. LORAZEPAM. [Concomitant]
     Active Substance: LORAZEPAM
     Indication: PRODUCT USED FOR UNKNOWN INDICATION
     Dosage: UNK
     Route: 048
  5. NICOTINE. [Concomitant]
     Active Substance: NICOTINE
     Dosage: PRN
     Route: 065
  6. LORAZEPAM. [Concomitant]
     Active Substance: LORAZEPAM
     Dosage: UNK
     Route: 048
  7. OLANZAPINE. [Suspect]
     Active Substance: OLANZAPINE
     Indication: PRODUCT USED FOR UNKNOWN INDICATION
     Dosage: 405 MG, QMO
     Route: 030
     Dates: start: 201911
  8. ANTIHAEMOPHILIC FACTOR VIII LYOPHIZED [Concomitant]
     Indication: PRODUCT USED FOR UNKNOWN INDICATION
     Dosage: 3000 IU, QMO
     Route: 042
  9. CLOZARIL [Suspect]
     Active Substance: CLOZAPINE
     Dosage: 300 MG
     Route: 048
     Dates: start: 20200324
  10. AMISULPRIDE MYLAN [Suspect]
     Active Substance: AMISULPRIDE
     Indication: PRODUCT USED FOR UNKNOWN INDICATION
     Dosage: 200 MG, BID
     Route: 065
  11. AMISULPRIDE MYLAN [Suspect]
     Active Substance: AMISULPRIDE
     Dosage: UNK
     Route: 065
  12. AMISULPRIDE [Suspect]
     Active Substance: AMISULPRIDE
     Dosage: UNK
     Route: 065
  13. ZUCLOPENTHIXOL DECANOATE [Suspect]
     Active Substance: ZUCLOPENTHIXOL DECANOATE
     Indication: PRODUCT USED FOR UNKNOWN INDICATION
     Dosage: UNK
     Route: 030
  14. VALPROIC ACID. [Suspect]
     Active Substance: VALPROIC ACID
     Dosage: UNK
     Route: 065
     Dates: start: 2019
  15. FERROUS SULFATE. [Concomitant]
     Active Substance: FERROUS SULFATE
     Indication: PRODUCT USED FOR UNKNOWN INDICATION
     Dosage: 325 MG, BID
     Route: 065
  16. NICOTINE. [Concomitant]
     Active Substance: NICOTINE
     Indication: PRODUCT USED FOR UNKNOWN INDICATION
     Dosage: 21 MG (PATCH)
     Route: 065
  17. NICOTINE. [Concomitant]
     Active Substance: NICOTINE
     Dosage: 1 DF, PRN
     Route: 065
  18. ZUCLOPENTHIXOL DECANOATE [Suspect]
     Active Substance: ZUCLOPENTHIXOL DECANOATE
     Dosage: UNK
     Route: 030
  19. VALPROIC ACID. [Suspect]
     Active Substance: VALPROIC ACID
     Indication: PRODUCT USED FOR UNKNOWN INDICATION
     Dosage: UNK
     Route: 065
     Dates: start: 201911
  20. VALPROIC ACID. [Suspect]
     Active Substance: VALPROIC ACID
     Indication: MENTAL DISORDER
     Dosage: UNK
     Route: 065
     Dates: start: 202003
  21. VALPROIC ACID. [Suspect]
     Active Substance: VALPROIC ACID
     Dosage: UNK
     Route: 065
     Dates: end: 202003
  22. AMISULPRIDE [Suspect]
     Active Substance: AMISULPRIDE
     Indication: PRODUCT USED FOR UNKNOWN INDICATION
     Dosage: 200 MILLIGRAM, BID
     Route: 065
  23. NICOTINE. [Concomitant]
     Active Substance: NICOTINE
     Dosage: 21 MILLIGRAM PATCH
     Route: 065
  24. ANTIHAEMOPHILIC FACTOR VIII LYOPHIZED [Concomitant]
     Dosage: 3000 IU, QMO
     Route: 042
  25. CLOZARIL [Suspect]
     Active Substance: CLOZAPINE
     Indication: PRODUCT USED FOR UNKNOWN INDICATION
     Dosage: 200 MG
     Route: 048
     Dates: start: 20081211
  26. CLOZARIL [Suspect]
     Active Substance: CLOZAPINE
     Dosage: DOSES RANGING BETWEEN 300-400 MG, OD
     Route: 048
     Dates: start: 2009, end: 201903
  27. OLANZAPINE MYLAN [Suspect]
     Active Substance: OLANZAPINE
     Indication: PRODUCT USED FOR UNKNOWN INDICATION
     Dosage: 20 MG, QD (NOCTE)
     Route: 048
     Dates: start: 201911
  28. ZUCLOPENTHIXOL DECANOATE [Suspect]
     Active Substance: ZUCLOPENTHIXOL DECANOATE
     Dosage: 400 MILLIGRAM, FORTNIGHTLY
     Route: 030
     Dates: start: 2019
  29. RISPERIDONE. [Suspect]
     Active Substance: RISPERIDONE
     Indication: PRODUCT USED FOR UNKNOWN INDICATION
     Dosage: UNK
     Route: 065
     Dates: start: 201911
  30. NICOTINE. [Concomitant]
     Active Substance: NICOTINE
     Dosage: PRN
     Route: 065

REACTIONS (8)
  - Schizophrenia [Unknown]
  - Lymphocyte count decreased [Recovered/Resolved]
  - Antipsychotic drug level increased [Not Recovered/Not Resolved]
  - Platelet count decreased [Unknown]
  - Drug ineffective [Unknown]
  - Leukopenia [Recovered/Resolved]
  - Intentional product misuse [Unknown]
  - Neutropenia [Recovered/Resolved]

NARRATIVE: CASE EVENT DATE: 2019
